FAERS Safety Report 10577432 (Version 1)
Quarter: 2014Q4

REPORT INFORMATION
  Report Type: Spontaneous
  Country: BR (occurrence: BR)
  Receive Date: 20141111
  Receipt Date: 20141111
  Transmission Date: 20150529
  Serious: Yes (Hospitalization, Other)
  Sender: FDA-Public Use
  Company Number: BR-ELI_LILLY_AND_COMPANY-BR201410012175

PATIENT
  Age: 48 Year
  Sex: Female
  Weight: 74 kg

DRUGS (7)
  1. CYMBALTA [Suspect]
     Active Substance: DULOXETINE HYDROCHLORIDE
     Indication: PAIN
     Dosage: 30 MG, QD
     Route: 048
     Dates: start: 20120601
  2. LISADOR [Concomitant]
     Active Substance: DIPYRONE\PROMETHAZINE HYDROCHLORIDE
     Dosage: UNK, UNKNOWN
     Route: 065
  3. PYRIDIUM [Concomitant]
     Active Substance: PHENAZOPYRIDINE
     Indication: URINARY TRACT INFECTION
  4. GABAPENTINA [Concomitant]
     Active Substance: GABAPENTIN
     Dosage: 300 G, TID
     Route: 065
  5. BUSCOPAN [Concomitant]
     Active Substance: BUTYLSCOPOLAMINE BROMIDE
     Dosage: UNK, UNKNOWN
     Route: 065
  6. MACRODANTIN [Concomitant]
     Active Substance: NITROFURANTOIN
     Dosage: 100 MG, QD
     Route: 065
  7. OMEPRAZOL                          /00661201/ [Concomitant]
     Active Substance: OMEPRAZOLE
     Dosage: 40 MG, BID
     Route: 065

REACTIONS (14)
  - Tuberculosis of genitourinary system [Recovered/Resolved]
  - Dyskinesia oesophageal [Not Recovered/Not Resolved]
  - Intestinal polyp [Recovered/Resolved]
  - Depressed mood [Not Recovered/Not Resolved]
  - Dry mouth [Not Recovered/Not Resolved]
  - Insomnia [Not Recovered/Not Resolved]
  - Anxiety [Not Recovered/Not Resolved]
  - Visual impairment [Not Recovered/Not Resolved]
  - Neuralgia [Not Recovered/Not Resolved]
  - Nosocomial infection [Recovered/Resolved]
  - Somnolence [Not Recovered/Not Resolved]
  - Hernia [Recovered/Resolved]
  - Underdose [Unknown]
  - Drug dependence [Unknown]

NARRATIVE: CASE EVENT DATE: 201306
